FAERS Safety Report 4926913-X (Version None)
Quarter: 2006Q1

REPORT INFORMATION
  Report Type: 
  Country: None (occurrence: None)
  Receive Date: 20060228
  Receipt Date: 20050908
  Transmission Date: 20060701
  Serious: Yes (Other)
  Sender: FDA-Public Use
  Company Number: US-GLAXOSMITHKLINE-A0573501A

PATIENT
  Age: 58 Year
  Sex: Male
  Weight: 95.5 kg

DRUGS (6)
  1. LAMICTAL [Suspect]
     Indication: DRUG USE FOR UNKNOWN INDICATION
     Dosage: 75MG TWICE PER DAY
     Route: 048
     Dates: start: 20030501, end: 20050531
  2. GEODON [Concomitant]
  3. EFFEXOR XR [Concomitant]
  4. NEURONTIN [Concomitant]
  5. LITHOBID [Concomitant]
  6. ANTICONVULSANTS [Concomitant]

REACTIONS (8)
  - CHEILITIS [None]
  - LIP PAIN [None]
  - MUCOUS MEMBRANE DISORDER [None]
  - ORAL SOFT TISSUE DISORDER [None]
  - RASH [None]
  - RASH VESICULAR [None]
  - SKIN EXFOLIATION [None]
  - STEVENS-JOHNSON SYNDROME [None]
